FAERS Safety Report 24061237 (Version 8)
Quarter: 2025Q2

REPORT INFORMATION
  Report Type: Spontaneous
  Country: AU (occurrence: AU)
  Receive Date: 20240708
  Receipt Date: 20250523
  Transmission Date: 20250716
  Serious: Yes (Life-Threatening, Hospitalization, Other)
  Sender: MYLAN
  Company Number: AU-MYLANLABS-2024M1062541

PATIENT
  Age: 40 Year
  Sex: Male

DRUGS (72)
  1. CLOZARIL [Suspect]
     Active Substance: CLOZAPINE
     Indication: Schizophrenia
     Route: 048
     Dates: start: 20240531, end: 20240622
  2. CLOZARIL [Suspect]
     Active Substance: CLOZAPINE
     Dates: start: 20240531, end: 20240622
  3. CLOZARIL [Suspect]
     Active Substance: CLOZAPINE
     Dates: start: 20240531, end: 20240622
  4. CLOZARIL [Suspect]
     Active Substance: CLOZAPINE
     Route: 048
     Dates: start: 20240531, end: 20240622
  5. CLOZARIL [Suspect]
     Active Substance: CLOZAPINE
     Route: 048
  6. CLOZARIL [Suspect]
     Active Substance: CLOZAPINE
  7. CLOZARIL [Suspect]
     Active Substance: CLOZAPINE
  8. CLOZARIL [Suspect]
     Active Substance: CLOZAPINE
     Route: 048
  9. CLOZARIL [Suspect]
     Active Substance: CLOZAPINE
     Route: 048
     Dates: start: 20250204, end: 20250508
  10. CLOZARIL [Suspect]
     Active Substance: CLOZAPINE
     Dates: start: 20250204, end: 20250508
  11. CLOZARIL [Suspect]
     Active Substance: CLOZAPINE
     Dates: start: 20250204, end: 20250508
  12. CLOZARIL [Suspect]
     Active Substance: CLOZAPINE
     Route: 048
     Dates: start: 20250204, end: 20250508
  13. CLOZARIL [Suspect]
     Active Substance: CLOZAPINE
     Route: 048
     Dates: start: 20250204, end: 20250508
  14. CLOZARIL [Suspect]
     Active Substance: CLOZAPINE
     Dates: start: 20250204, end: 20250508
  15. CLOZARIL [Suspect]
     Active Substance: CLOZAPINE
     Dates: start: 20250204, end: 20250508
  16. CLOZARIL [Suspect]
     Active Substance: CLOZAPINE
     Route: 048
     Dates: start: 20250204, end: 20250508
  17. FLUPENTIXOL DECANOATE [Concomitant]
     Active Substance: FLUPENTIXOL DECANOATE
  18. FLUPENTIXOL DECANOATE [Concomitant]
     Active Substance: FLUPENTIXOL DECANOATE
  19. FLUPENTIXOL DECANOATE [Concomitant]
     Active Substance: FLUPENTIXOL DECANOATE
     Route: 065
  20. FLUPENTIXOL DECANOATE [Concomitant]
     Active Substance: FLUPENTIXOL DECANOATE
     Route: 065
  21. FLUPENTIXOL DECANOATE [Concomitant]
     Active Substance: FLUPENTIXOL DECANOATE
     Dosage: 300 MILLIGRAM, QW
  22. FLUPENTIXOL DECANOATE [Concomitant]
     Active Substance: FLUPENTIXOL DECANOATE
     Dosage: 300 MILLIGRAM, QW
  23. FLUPENTIXOL DECANOATE [Concomitant]
     Active Substance: FLUPENTIXOL DECANOATE
     Dosage: 300 MILLIGRAM, QW
     Route: 030
  24. FLUPENTIXOL DECANOATE [Concomitant]
     Active Substance: FLUPENTIXOL DECANOATE
     Dosage: 300 MILLIGRAM, QW
     Route: 030
  25. BENZTROPINE [Concomitant]
     Active Substance: BENZTROPINE
     Dosage: 2 MILLIGRAM, AM (MORNING)
  26. BENZTROPINE [Concomitant]
     Active Substance: BENZTROPINE
     Dosage: 2 MILLIGRAM, AM (MORNING)
     Route: 065
  27. BENZTROPINE [Concomitant]
     Active Substance: BENZTROPINE
     Dosage: 2 MILLIGRAM, AM (MORNING)
     Route: 065
  28. BENZTROPINE [Concomitant]
     Active Substance: BENZTROPINE
     Dosage: 2 MILLIGRAM, AM (MORNING)
  29. CHLORPROMAZINE [Concomitant]
     Active Substance: CHLORPROMAZINE
     Dosage: 600 MILLIGRAM, PM (NIGHT)
  30. CHLORPROMAZINE [Concomitant]
     Active Substance: CHLORPROMAZINE
     Dosage: 600 MILLIGRAM, PM (NIGHT)
  31. CHLORPROMAZINE [Concomitant]
     Active Substance: CHLORPROMAZINE
     Dosage: 600 MILLIGRAM, PM (NIGHT)
     Route: 048
  32. CHLORPROMAZINE [Concomitant]
     Active Substance: CHLORPROMAZINE
     Dosage: 600 MILLIGRAM, PM (NIGHT)
     Route: 048
  33. CHLORPROMAZINE [Concomitant]
     Active Substance: CHLORPROMAZINE
     Dosage: 300 MILLIGRAM, TID (TDS)
  34. CHLORPROMAZINE [Concomitant]
     Active Substance: CHLORPROMAZINE
     Dosage: 300 MILLIGRAM, TID (TDS)
  35. CHLORPROMAZINE [Concomitant]
     Active Substance: CHLORPROMAZINE
     Dosage: 300 MILLIGRAM, TID (TDS)
     Route: 048
  36. CHLORPROMAZINE [Concomitant]
     Active Substance: CHLORPROMAZINE
     Dosage: 300 MILLIGRAM, TID (TDS)
     Route: 048
  37. MIANSERIN [Concomitant]
     Active Substance: MIANSERIN
     Dosage: 50 MILLIGRAM, PM (NIGHT)
  38. MIANSERIN [Concomitant]
     Active Substance: MIANSERIN
     Dosage: 50 MILLIGRAM, PM (NIGHT)
     Route: 065
  39. MIANSERIN [Concomitant]
     Active Substance: MIANSERIN
     Dosage: 50 MILLIGRAM, PM (NIGHT)
     Route: 065
  40. MIANSERIN [Concomitant]
     Active Substance: MIANSERIN
     Dosage: 50 MILLIGRAM, PM (NIGHT)
  41. OLANZAPINE [Concomitant]
     Active Substance: OLANZAPINE
     Dosage: 30 MILLIGRAM, PM (NIGHT)
  42. OLANZAPINE [Concomitant]
     Active Substance: OLANZAPINE
     Dosage: 30 MILLIGRAM, PM (NIGHT)
  43. OLANZAPINE [Concomitant]
     Active Substance: OLANZAPINE
     Dosage: 30 MILLIGRAM, PM (NIGHT)
     Route: 048
  44. OLANZAPINE [Concomitant]
     Active Substance: OLANZAPINE
     Dosage: 30 MILLIGRAM, PM (NIGHT)
     Route: 048
  45. OLANZAPINE [Concomitant]
     Active Substance: OLANZAPINE
     Dosage: 10 MILLIGRAM, AM (MORNING)
  46. OLANZAPINE [Concomitant]
     Active Substance: OLANZAPINE
     Dosage: 10 MILLIGRAM, AM (MORNING)
  47. OLANZAPINE [Concomitant]
     Active Substance: OLANZAPINE
     Dosage: 10 MILLIGRAM, AM (MORNING)
     Route: 048
  48. OLANZAPINE [Concomitant]
     Active Substance: OLANZAPINE
     Dosage: 10 MILLIGRAM, AM (MORNING)
     Route: 048
  49. OLANZAPINE [Concomitant]
     Active Substance: OLANZAPINE
     Dosage: 20 MILLIGRAM, PM (NIGHT)
  50. OLANZAPINE [Concomitant]
     Active Substance: OLANZAPINE
     Dosage: 20 MILLIGRAM, PM (NIGHT)
     Route: 048
  51. OLANZAPINE [Concomitant]
     Active Substance: OLANZAPINE
     Dosage: 20 MILLIGRAM, PM (NIGHT)
  52. OLANZAPINE [Concomitant]
     Active Substance: OLANZAPINE
     Dosage: 20 MILLIGRAM, PM (NIGHT)
     Route: 048
  53. HALOPERIDOL [Concomitant]
     Active Substance: HALOPERIDOL
  54. HALOPERIDOL [Concomitant]
     Active Substance: HALOPERIDOL
     Route: 065
  55. HALOPERIDOL [Concomitant]
     Active Substance: HALOPERIDOL
     Route: 065
  56. HALOPERIDOL [Concomitant]
     Active Substance: HALOPERIDOL
  57. LORAZEPAM [Concomitant]
     Active Substance: LORAZEPAM
  58. LORAZEPAM [Concomitant]
     Active Substance: LORAZEPAM
     Route: 065
  59. LORAZEPAM [Concomitant]
     Active Substance: LORAZEPAM
     Route: 065
  60. LORAZEPAM [Concomitant]
     Active Substance: LORAZEPAM
  61. PROMETHAZINE [Concomitant]
     Active Substance: PROMETHAZINE HYDROCHLORIDE
  62. PROMETHAZINE [Concomitant]
     Active Substance: PROMETHAZINE HYDROCHLORIDE
     Route: 065
  63. PROMETHAZINE [Concomitant]
     Active Substance: PROMETHAZINE HYDROCHLORIDE
     Route: 065
  64. PROMETHAZINE [Concomitant]
     Active Substance: PROMETHAZINE HYDROCHLORIDE
  65. FLUPENTIXOL [Concomitant]
     Active Substance: FLUPENTIXOL
     Dosage: 300 MILLIGRAM, QW
  66. FLUPENTIXOL [Concomitant]
     Active Substance: FLUPENTIXOL
     Dosage: 300 MILLIGRAM, QW
     Route: 030
  67. FLUPENTIXOL [Concomitant]
     Active Substance: FLUPENTIXOL
     Dosage: 300 MILLIGRAM, QW
     Route: 030
  68. FLUPENTIXOL [Concomitant]
     Active Substance: FLUPENTIXOL
     Dosage: 300 MILLIGRAM, QW
  69. PAROXETINE [Concomitant]
     Active Substance: PAROXETINE
     Dosage: 40 MILLIGRAM, PM  (NIGHT)
  70. PAROXETINE [Concomitant]
     Active Substance: PAROXETINE
     Dosage: 40 MILLIGRAM, PM  (NIGHT)
     Route: 065
  71. PAROXETINE [Concomitant]
     Active Substance: PAROXETINE
     Dosage: 40 MILLIGRAM, PM  (NIGHT)
     Route: 065
  72. PAROXETINE [Concomitant]
     Active Substance: PAROXETINE
     Dosage: 40 MILLIGRAM, PM  (NIGHT)

REACTIONS (17)
  - Loss of consciousness [Unknown]
  - Syncope [Unknown]
  - Polydipsia [Unknown]
  - Hyponatraemia [Unknown]
  - Depressed level of consciousness [Unknown]
  - Seizure [Unknown]
  - Meningococcal bacteraemia [Unknown]
  - Mental impairment [Unknown]
  - Malaise [Unknown]
  - Head injury [Unknown]
  - Tongue injury [Unknown]
  - Influenza [Unknown]
  - White blood cell count decreased [Recovered/Resolved]
  - Neutrophil count decreased [Recovered/Resolved]
  - Lymphocyte count decreased [Unknown]
  - Leukocytosis [Unknown]
  - Neutrophilia [Unknown]

NARRATIVE: CASE EVENT DATE: 20240701
